FAERS Safety Report 15791651 (Version 1)
Quarter: 2019Q1

REPORT INFORMATION
  Report Type: Spontaneous
  Country: FR (occurrence: FR)
  Receive Date: 20190105
  Receipt Date: 20190105
  Transmission Date: 20190417
  Serious: Yes (Other)
  Sender: FDA-Public Use
  Company Number: FR-ACCORD-100456

PATIENT
  Age: 60 Year
  Sex: Male
  Weight: 81 kg

DRUGS (12)
  1. FLUOROURACIL. [Suspect]
     Active Substance: FLUOROURACIL
     Indication: ADENOCARCINOMA OF COLON
     Route: 041
     Dates: start: 20180214
  2. UVEDOSE [Concomitant]
     Active Substance: CHOLECALCIFEROL
  3. XANAX [Concomitant]
     Active Substance: ALPRAZOLAM
  4. ZALTRAP [Suspect]
     Active Substance: ZIV-AFLIBERCEPT
     Indication: ADENOCARCINOMA OF COLON
     Route: 041
     Dates: start: 20180214, end: 20180411
  5. DOXYLIS [Concomitant]
  6. AMLOR [Concomitant]
     Active Substance: AMLODIPINE BESYLATE
  7. CAPTEA [Concomitant]
     Active Substance: CAPTOPRIL\HYDROCHLOROTHIAZIDE
  8. TIORFAN [Concomitant]
     Active Substance: RACECADOTRIL
  9. IRINOTECAN [Suspect]
     Active Substance: IRINOTECAN
     Indication: ADENOCARCINOMA OF COLON
     Route: 041
     Dates: start: 20180214
  10. INEXIUM [Concomitant]
     Active Substance: ESOMEPRAZOLE
     Indication: GASTROOESOPHAGEAL REFLUX DISEASE
     Route: 048
  11. PRIMPERAN [Concomitant]
     Active Substance: METOCLOPRAMIDE HYDROCHLORIDE
  12. ZYLORIC [Concomitant]
     Active Substance: ALLOPURINOL

REACTIONS (1)
  - Colitis microscopic [Not Recovered/Not Resolved]

NARRATIVE: CASE EVENT DATE: 201802
